FAERS Safety Report 7220104-8 (Version None)
Quarter: 2011Q1

REPORT INFORMATION
  Report Type: 
  Country: None (occurrence: None)
  Receive Date: 20110111
  Receipt Date: 20110105
  Transmission Date: 20110831
  Serious: Yes (Other)
  Sender: FDA-Public Use
  Company Number: B0692334A

PATIENT
  Sex: Female

DRUGS (3)
  1. METHYLDOPA [Concomitant]
  2. ZOFRAN [Suspect]
     Indication: PROPHYLAXIS OF NAUSEA AND VOMITING
     Dosage: 4G TWICE PER DAY
     Route: 048
     Dates: start: 20100101
  3. FRAGMIN [Concomitant]

REACTIONS (4)
  - KETONURIA [None]
  - DRUG EXPOSURE DURING PREGNANCY [None]
  - PREMATURE BABY [None]
  - CONSTIPATION [None]
